FAERS Safety Report 8493059-6 (Version None)
Quarter: 2012Q2

REPORT INFORMATION
  Report Type: 
  Country: None (occurrence: None)
  Receive Date: 20120627
  Receipt Date: 20120613
  Transmission Date: 20120825
  Serious: Yes (Hospitalization)
  Sender: FDA-Public Use
  Company Number: 2012P1041721

PATIENT
  Age: 87 Year
  Sex: Male

DRUGS (7)
  1. AMLODIPINE [Concomitant]
  2. KALCIPOS-D [Concomitant]
  3. SIMVASTATIN [Concomitant]
  4. FENTANYL [Suspect]
     Dosage: 1 PATCH; TDER, 12 MCG/HR; TDER
     Route: 062
     Dates: start: 20120218
  5. ATACANID [Concomitant]
  6. TRILEPTAL [Suspect]
     Dosage: 450 MG;BID;PO
     Route: 048
     Dates: start: 20110308
  7. WARFARIN SODIUM [Concomitant]

REACTIONS (2)
  - PERSONALITY DISORDER [None]
  - DYSARTHRIA [None]
